FAERS Safety Report 7854982-6 (Version None)
Quarter: 2011Q4

REPORT INFORMATION
  Report Type: 
  Country: None (occurrence: None)
  Receive Date: 20111026
  Receipt Date: 20111012
  Transmission Date: 20120403
  Serious: Yes (Other)
  Sender: FDA-Public Use
  Company Number: US-TYCO HEALTHCARE/MALLINCKRODT-T201102259

PATIENT
  Age: 51 Year
  Sex: Female

DRUGS (7)
  1. KETAMINE HCL [Concomitant]
  2. TIZANIDINE HCL [Concomitant]
  3. METHADONE HCL [Concomitant]
     Indication: DIABETIC NEUROPATHY
     Dosage: 60 MG, UNK
  4. EXALGO [Suspect]
     Indication: DIABETIC NEUROPATHY
     Dosage: 32 MG, UNK
     Route: 048
  5. HYDROMORPHONE HCL [Concomitant]
     Indication: DIABETIC NEUROPATHY
     Dosage: 16 MG, UNK
  6. ADDERALL 5 [Concomitant]
  7. GABAPENTIN [Concomitant]

REACTIONS (1)
  - PNEUMONIA [None]
